FAERS Safety Report 14412152 (Version 1)
Quarter: 2018Q1

REPORT INFORMATION
  Report Type: Spontaneous
  Country: DE (occurrence: DE)
  Receive Date: 20180119
  Receipt Date: 20180119
  Transmission Date: 20180509
  Serious: Yes (Other)
  Sender: FDA-Public Use
  Company Number: PHHY2018DE004808

PATIENT

DRUGS (5)
  1. CYCLOPHOSPHAMIDE. [Suspect]
     Active Substance: CYCLOPHOSPHAMIDE
     Indication: LYMPHOPROLIFERATIVE DISORDER
     Dosage: 750 MG/M2 ON DAY 1, EVERY 21 DAYS
     Route: 042
  2. DOXORUBICIN [Suspect]
     Active Substance: DOXORUBICIN
     Indication: LYMPHOPROLIFERATIVE DISORDER
     Dosage: 50 MG/M2 ON DAY 1, EVERY 21 DAYS
     Route: 042
  3. VINCRISTINE [Suspect]
     Active Substance: VINCRISTINE
     Indication: LYMPHOPROLIFERATIVE DISORDER
     Dosage: 1.4 MG/M2 ON DAY1, EVERY 21 DAYS
     Route: 042
  4. RITUXIMAB. [Suspect]
     Active Substance: RITUXIMAB
     Indication: LYMPHOPROLIFERATIVE DISORDER
     Dosage: 375 MG/M2 ON DAY 1, EVERY 21 DAYS
     Route: 042
  5. PREDNISONE. [Suspect]
     Active Substance: PREDNISONE
     Indication: LYMPHOPROLIFERATIVE DISORDER
     Dosage: 50 MG/M2 ON DAYS 1 THROUGH 5, EVERY 21 DAYS
     Route: 048

REACTIONS (2)
  - Product use in unapproved indication [Unknown]
  - Acute myeloid leukaemia [None]
